FAERS Safety Report 4589923-0 (Version None)
Quarter: 2005Q1

REPORT INFORMATION
  Report Type: 
  Country: None (occurrence: None)
  Receive Date: 20050223
  Receipt Date: 20050216
  Transmission Date: 20050727
  Serious: Yes (Death, Hospitalization)
  Sender: FDA-Public Use
  Company Number: US-MERCK-0502USA02203

PATIENT
  Age: 67 Year
  Sex: Male

DRUGS (5)
  1. VIOXX [Suspect]
     Route: 048
     Dates: start: 20010601
  2. COUMADIN [Concomitant]
     Route: 065
  3. PREDNISONE [Concomitant]
     Route: 065
  4. ENTOCORT [Concomitant]
     Route: 065
  5. NEXIUM [Concomitant]
     Route: 065

REACTIONS (3)
  - ASPERGILLOSIS [None]
  - BRONCHOPULMONARY ASPERGILLOSIS [None]
  - DEEP VEIN THROMBOSIS [None]
